FAERS Safety Report 8347493-5 (Version None)
Quarter: 2012Q2

REPORT INFORMATION
  Report Type: 
  Country: None (occurrence: None)
  Receive Date: 20120509
  Receipt Date: 20120430
  Transmission Date: 20120825
  Serious: Yes (Death)
  Sender: FDA-Public Use
  Company Number: GB-JNJFOC-20101001198

PATIENT
  Age: 63 Year
  Sex: Female

DRUGS (10)
  1. CHONDROITIN [Concomitant]
     Route: 065
  2. ACETAMINOPHEN [Concomitant]
     Indication: OSTEOARTHRITIS
     Route: 065
     Dates: start: 20090731
  3. GARLIC [Concomitant]
     Route: 065
  4. UNKNOWN MEDICATION [Concomitant]
     Route: 065
  5. TRAMADOL HCL [Suspect]
     Indication: ARTHRITIS
     Route: 048
     Dates: start: 20050428, end: 20100615
  6. PIROXICAM [Suspect]
     Indication: OSTEOPOROSIS
     Route: 065
     Dates: start: 20050428, end: 20100615
  7. FELODIPINE [Concomitant]
     Indication: HYPERTENSION
     Route: 065
     Dates: start: 20050929
  8. DULCOLAX [Concomitant]
     Route: 048
  9. ROSUVASTATIN [Concomitant]
     Route: 065
     Dates: start: 20071102
  10. GLUCOSAMINE [Concomitant]
     Route: 048

REACTIONS (2)
  - ARRHYTHMIA [None]
  - CARDIAC ARREST [None]
